FAERS Safety Report 9542959 (Version 2)
Quarter: 2014Q3

REPORT INFORMATION
  Report Type: Spontaneous
  Country: US (occurrence: US)
  Receive Date: 20130923
  Receipt Date: 20140812
  Transmission Date: 20150326
  Serious: Yes (Hospitalization, Other)
  Sender: FDA-Public Use
  Company Number: US-009507513-1309USA008281

PATIENT
  Sex: Female

DRUGS (1)
  1. NUVARING [Suspect]
     Active Substance: ETHINYL ESTRADIOL\ETONOGESTREL
     Dosage: UNK
     Route: 067
     Dates: start: 2005, end: 201109

REACTIONS (8)
  - Pleural effusion [Unknown]
  - Electrocardiogram ST segment elevation [Unknown]
  - Pain in extremity [Recovered/Resolved]
  - Atelectasis [Unknown]
  - Muscle strain [Unknown]
  - Pulmonary embolism [Unknown]
  - Nasopharyngitis [Unknown]
  - Electrocardiogram abnormal [Unknown]

NARRATIVE: CASE EVENT DATE: 20110816
